FAERS Safety Report 7415350-4 (Version None)
Quarter: 2011Q2

REPORT INFORMATION
  Report Type: 
  Country: None (occurrence: None)
  Receive Date: 20110414
  Receipt Date: 20110405
  Transmission Date: 20111010
  Serious: Yes (Death, Life-Threatening, Hospitalization, Disabling)
  Sender: FDA-Public Use
  Company Number: A0918672A

PATIENT
  Age: 69 Year
  Sex: Male
  Weight: 53.6 kg

DRUGS (8)
  1. FLOMAX [Concomitant]
  2. LISINOPRIL [Concomitant]
  3. PRILOSEC [Concomitant]
  4. MARINOL [Concomitant]
  5. INSULIN [Concomitant]
  6. PREDNISOLONE [Concomitant]
  7. VOTRIENT [Suspect]
     Dosage: 200MG FOUR TIMES PER DAY
     Route: 048
     Dates: start: 20110310, end: 20110316
  8. LYRICA [Concomitant]

REACTIONS (2)
  - RENAL CELL CARCINOMA STAGE IV [None]
  - METASTATIC RENAL CELL CARCINOMA [None]
